FAERS Safety Report 20767311 (Version 1)
Quarter: 2022Q2

REPORT INFORMATION
  Report Type: Spontaneous
  Country: SE (occurrence: SE)
  Receive Date: 20220429
  Receipt Date: 20220429
  Transmission Date: 20220721
  Serious: Yes (Life-Threatening)
  Sender: FDA-Public Use
  Company Number: None

PATIENT
  Age: 81 Year
  Sex: Male

DRUGS (2)
  1. METHOTREXATE [Suspect]
     Active Substance: METHOTREXATE
     Indication: Rheumatoid arthritis
     Dosage: 20 MG,DURATION 16 YEARS
     Dates: start: 20050810, end: 20210901
  2. RITUXIMAB [Suspect]
     Active Substance: RITUXIMAB
     Indication: Rheumatoid arthritis
     Dosage: 1000 MG,DURATION 835 DAYS
     Dates: start: 20190520, end: 20210901

REACTIONS (1)
  - Chronic sinusitis [Recovering/Resolving]

NARRATIVE: CASE EVENT DATE: 20220204
